FAERS Safety Report 8960048 (Version 1)
Quarter: 2012Q4

REPORT INFORMATION
  Report Type: Report from Study
  Country: US (occurrence: US)
  Receive Date: 20121212
  Receipt Date: 20121212
  Transmission Date: 20130627
  Serious: Yes (Hospitalization)
  Sender: FDA-Public Use
  Company Number: US-JNJFOC-20100101925

PATIENT
  Age: 60 Year
  Sex: Male
  Weight: 94.9 kg

DRUGS (17)
  1. DOXORUBICIN HYDROCHLORIDE (DOXIL) [Suspect]
     Indication: MULTIPLE MYELOMA
     Dosage: cycle 3
     Route: 042
  2. DOXORUBICIN HYDROCHLORIDE (DOXIL) [Suspect]
     Indication: MULTIPLE MYELOMA
     Dosage: cycle 1
     Route: 042
     Dates: start: 20090807
  3. DOXORUBICIN HYDROCHLORIDE (DOXIL) [Suspect]
     Indication: MULTIPLE MYELOMA
     Dosage: cycle 5
     Route: 042
     Dates: start: 20091208, end: 20091208
  4. DOXORUBICIN HYDROCHLORIDE (DOXIL) [Suspect]
     Indication: MULTIPLE MYELOMA
     Dosage: cycle 2
     Route: 042
  5. DOXORUBICIN HYDROCHLORIDE (DOXIL) [Suspect]
     Indication: MULTIPLE MYELOMA
     Dosage: cycle 4
     Route: 042
  6. REVLIMID [Suspect]
     Indication: MULTIPLE MYELOMA
     Dosage: cycle 4
     Route: 048
  7. REVLIMID [Suspect]
     Indication: MULTIPLE MYELOMA
     Dosage: cycle 2
     Route: 048
  8. REVLIMID [Suspect]
     Indication: MULTIPLE MYELOMA
     Dosage: cycle 3
     Route: 048
  9. REVLIMID [Suspect]
     Indication: MULTIPLE MYELOMA
     Dosage: cycle 5
     Route: 048
     Dates: start: 20091208, end: 20091208
  10. REVLIMID [Suspect]
     Indication: MULTIPLE MYELOMA
     Dosage: cycle 1 days 1-21
     Route: 048
     Dates: start: 20090807
  11. DEXAMETHASONE [Suspect]
     Indication: MULTIPLE MYELOMA
     Dosage: cycle 1 days 1-4
     Route: 048
     Dates: start: 20090807
  12. DEXAMETHASONE [Suspect]
     Indication: MULTIPLE MYELOMA
     Dosage: cycle 5
     Route: 048
     Dates: start: 20091208, end: 20091208
  13. DEXAMETHASONE [Suspect]
     Indication: MULTIPLE MYELOMA
     Dosage: cycel 2
     Route: 048
  14. DEXAMETHASONE [Suspect]
     Indication: MULTIPLE MYELOMA
     Dosage: cycle 3
     Route: 048
  15. DEXAMETHASONE [Suspect]
     Indication: MULTIPLE MYELOMA
     Dosage: cycle 4
     Route: 048
  16. ATENOLOL [Concomitant]
     Indication: HYPERTENSION
     Route: 048
  17. SPIRONOLACTONE [Concomitant]
     Indication: HYPERTENSION
     Route: 065

REACTIONS (9)
  - Blood culture positive [Recovered/Resolved]
  - Dyspnoea [Recovered/Resolved]
  - Headache [Recovered/Resolved]
  - Epistaxis [Recovered/Resolved]
  - Hyperhidrosis [Recovered/Resolved]
  - Fatigue [Recovered/Resolved]
  - Pyrexia [Recovered/Resolved]
  - Tremor [Recovered/Resolved]
  - Infection [Recovered/Resolved]
